FAERS Safety Report 7998725-4 (Version None)
Quarter: 2011Q4

REPORT INFORMATION
  Report Type: 
  Country: None (occurrence: None)
  Receive Date: 20111221
  Receipt Date: 20111212
  Transmission Date: 20120403
  Serious: Yes (Hospitalization)
  Sender: FDA-Public Use
  Company Number: US-BAYER-2011-053890

PATIENT
  Age: 17 Year
  Sex: Female
  Weight: 60.771 kg

DRUGS (7)
  1. ERYTHROMYCIN [Concomitant]
     Dosage: UNK
     Dates: start: 20080301
  2. NORGESTIMATE AND ETHINYL ESTRADIOL [Concomitant]
     Indication: ACNE
     Dosage: UNK
     Dates: start: 20080101, end: 20080301
  3. NORGESTIMATE AND ETHINYL ESTRADIOL [Concomitant]
     Indication: MENSTRUAL CYCLE MANAGEMENT
  4. KEFLEX [Concomitant]
     Indication: LACERATION
     Dosage: 500 MG, TID
     Dates: start: 20080607, end: 20080617
  5. MUPIROCIN [Concomitant]
     Indication: LACERATION
     Dosage: 2 %, UNK
     Dates: start: 20080607, end: 20080617
  6. YAZ [Suspect]
     Indication: ACNE
     Dosage: UNK
     Dates: start: 20080401, end: 20080501
  7. YAZ [Suspect]
     Indication: MENSTRUAL CYCLE MANAGEMENT
     Dosage: UNK
     Dates: start: 20080401, end: 20080501

REACTIONS (4)
  - INJURY [None]
  - PULMONARY EMBOLISM [None]
  - PAIN [None]
  - DEEP VEIN THROMBOSIS [None]
